FAERS Safety Report 8343925-7 (Version None)
Quarter: 2012Q2

REPORT INFORMATION
  Report Type: 
  Country: None (occurrence: None)
  Receive Date: 20120508
  Receipt Date: 20120427
  Transmission Date: 20120825
  Serious: Yes (Hospitalization)
  Sender: FDA-Public Use
  Company Number: JP-BAYER-2012-024642

PATIENT
  Age: 52 Year
  Sex: Male
  Weight: 42 kg

DRUGS (4)
  1. NEXAVAR [Suspect]
     Indication: HEPATIC NEOPLASM MALIGNANT
     Dosage: 800 MG, UNK
     Route: 048
     Dates: start: 20110922, end: 20111005
  2. NEXAVAR [Suspect]
     Dosage: 400 MG, UNK
     Route: 048
     Dates: start: 20111006, end: 20120111
  3. NEXAVAR [Suspect]
     Dosage: 200 MG, UNK
     Route: 048
     Dates: start: 20120223, end: 20120226
  4. NEXAVAR [Suspect]
     Dosage: 600 MG, UNK
     Route: 048
     Dates: start: 20120112, end: 20120222

REACTIONS (1)
  - VASCULITIS [None]
